FAERS Safety Report 7906902-3 (Version None)
Quarter: 2011Q4

REPORT INFORMATION
  Report Type: 
  Country: None (occurrence: None)
  Receive Date: 20111110
  Receipt Date: 20110426
  Transmission Date: 20120403
  Serious: No
  Sender: FDA-Public Use
  Company Number: US-BAYER-2011-037241

PATIENT

DRUGS (1)
  1. NEXAVAR [Suspect]

REACTIONS (1)
  - ACNE [None]
